FAERS Safety Report 8321400-3 (Version None)
Quarter: 2012Q2

REPORT INFORMATION
  Report Type: 
  Country: None (occurrence: None)
  Receive Date: 20120430
  Receipt Date: 20120425
  Transmission Date: 20120825
  Serious: Yes (Death)
  Sender: FDA-Public Use
  Company Number: CN-ASTELLAS-2012JP003651

PATIENT

DRUGS (4)
  1. PREDNISOLONE [Suspect]
     Dosage: 1.0 MG/KG, UNKNOWN/D
     Route: 048
  2. PREDNISOLONE [Suspect]
     Dosage: 10 MG, UNKNOWN/D
     Route: 048
  3. TACROLIMUS [Suspect]
     Indication: LUPUS NEPHRITIS
     Dosage: 0.05 MG/KG, BID
     Route: 048
  4. TACROLIMUS [Suspect]
     Route: 048

REACTIONS (1)
  - PNEUMONIA [None]
